FAERS Safety Report 12767835 (Version 3)
Quarter: 2016Q4

REPORT INFORMATION
  Report Type: Spontaneous
  Country: US (occurrence: US)
  Receive Date: 20160921
  Receipt Date: 20161104
  Transmission Date: 20170207
  Serious: No
  Sender: FDA-Public Use
  Company Number: US-PFIZER INC-2016437539

PATIENT
  Age: 64 Year
  Sex: Male
  Weight: 90.72 kg

DRUGS (2)
  1. GABAPENTIN. [Suspect]
     Active Substance: GABAPENTIN
     Indication: CERVICAL RADICULOPATHY
  2. GABAPENTIN. [Suspect]
     Active Substance: GABAPENTIN
     Indication: NEURALGIA
     Dosage: UNK
     Route: 048
     Dates: start: 20160822, end: 20160913

REACTIONS (9)
  - Diarrhoea [Recovered/Resolved]
  - Hallucination [Unknown]
  - Product use issue [Unknown]
  - Visual impairment [Unknown]
  - Lethargy [Recovered/Resolved]
  - Peripheral swelling [Unknown]
  - Abdominal distension [Unknown]
  - Local swelling [Unknown]
  - Oedema peripheral [Recovered/Resolved]

NARRATIVE: CASE EVENT DATE: 20160822
